FAERS Safety Report 6738004-6 (Version None)
Quarter: 2010Q2

REPORT INFORMATION
  Report Type: 
  Country: None (occurrence: None)
  Receive Date: 20100524
  Receipt Date: 20100512
  Transmission Date: 20101027
  Serious: Yes (Other)
  Sender: FDA-Public Use
  Company Number: BE-ROCHE-703410

PATIENT
  Sex: Female
  Weight: 55 kg

DRUGS (4)
  1. ROACTEMRA [Suspect]
     Route: 042
     Dates: start: 20090703, end: 20100401
  2. METHOTREXATE [Concomitant]
     Route: 048
     Dates: start: 20081121
  3. PREDNISOLONE [Concomitant]
     Route: 048
     Dates: start: 20081121
  4. CELEBREX [Concomitant]
     Route: 048
     Dates: start: 20081121

REACTIONS (2)
  - CELLULITIS [None]
  - FACIAL PALSY [None]
